FAERS Safety Report 11891680 (Version 1)
Quarter: 2016Q1

REPORT INFORMATION
  Report Type: Spontaneous
  Country: US (occurrence: US)
  Receive Date: 20160106
  Receipt Date: 20160106
  Transmission Date: 20160526
  Serious: Yes (Hospitalization)
  Sender: FDA-Public Use
  Company Number: US-AMGEN-USASP2015140685

PATIENT
  Sex: Female

DRUGS (1)
  1. NPLATE [Suspect]
     Active Substance: ROMIPLOSTIM
     Indication: IMMUNE THROMBOCYTOPENIC PURPURA
     Dosage: 5 DOSES PER MONTH
     Route: 065

REACTIONS (4)
  - Hepatomegaly [Unknown]
  - Platelet count decreased [Recovering/Resolving]
  - Drug withdrawal syndrome [Unknown]
  - Splenomegaly [Unknown]
